FAERS Safety Report 25087336 (Version 1)
Quarter: 2025Q1

REPORT INFORMATION
  Report Type: Spontaneous
  Country: US (occurrence: US)
  Receive Date: 20250318
  Receipt Date: 20250318
  Transmission Date: 20250408
  Serious: No
  Sender: GLAXOSMITHKLINE
  Company Number: US-GSK-US2025AMR030815

PATIENT
  Age: 49 Year
  Sex: Male

DRUGS (1)
  1. ALBUTEROL SULFATE [Suspect]
     Active Substance: ALBUTEROL SULFATE
     Indication: Pneumonia

REACTIONS (4)
  - Oxygen saturation decreased [Unknown]
  - Wrong technique in device usage process [Unknown]
  - Product prescribing issue [Unknown]
  - Product use in unapproved indication [Unknown]
